FAERS Safety Report 7736403-7 (Version None)
Quarter: 2011Q3

REPORT INFORMATION
  Report Type: 
  Country: None (occurrence: None)
  Receive Date: 20110908
  Receipt Date: 20110413
  Transmission Date: 20111222
  Serious: No
  Sender: FDA-Public Use
  Company Number: US-BAYER-2011-032792

PATIENT
  Sex: Female
  Weight: 56.689 kg

DRUGS (1)
  1. MIRENA [Suspect]
     Dosage: 20 MCG/24HR, CONT
     Dates: start: 20080101

REACTIONS (2)
  - DECREASED APPETITE [None]
  - WEIGHT DECREASED [None]
